FAERS Safety Report 7534056-4 (Version None)
Quarter: 2011Q2

REPORT INFORMATION
  Report Type: 
  Country: None (occurrence: None)
  Receive Date: 20110608
  Receipt Date: 20061011
  Transmission Date: 20111010
  Serious: Yes (Other)
  Sender: FDA-Public Use
  Company Number: PHMT2006CA01820

PATIENT
  Sex: Male

DRUGS (3)
  1. SANDOSTATIN LAR [Suspect]
     Dosage: 15 MG, QMO
     Route: 030
     Dates: start: 20060801
  2. ATIVAN [Concomitant]
  3. SANDOSTATIN LAR [Suspect]
     Indication: PITUITARY TUMOUR
     Dosage: 10 MG, QMO
     Route: 030
     Dates: start: 20041217, end: 20060801

REACTIONS (4)
  - FEMUR FRACTURE [None]
  - ARTHROPATHY [None]
  - MOOD SWINGS [None]
  - FALL [None]
